FAERS Safety Report 24894790 (Version 1)
Quarter: 2025Q1

REPORT INFORMATION
  Report Type: Spontaneous
  Country: US (occurrence: US)
  Receive Date: 20250128
  Receipt Date: 20250128
  Transmission Date: 20250409
  Serious: Yes (Disabling, Other)
  Sender: PURDUE
  Company Number: US-PURDUE PHARMA-USA-2025-0314880

PATIENT
  Sex: Male

DRUGS (2)
  1. OXYCONTIN [Suspect]
     Active Substance: OXYCODONE HYDROCHLORIDE
     Indication: Product used for unknown indication
     Route: 048
  2. HEROIN [Suspect]
     Active Substance: DIAMORPHINE
     Indication: Product used for unknown indication
     Route: 065

REACTIONS (13)
  - Impaired driving ability [Unknown]
  - Hepatitis C [Unknown]
  - Overdose [Unknown]
  - Toxicity to various agents [Unknown]
  - Drug dependence [Unknown]
  - Drug abuse [Unknown]
  - Injury [Unknown]
  - Emotional distress [Unknown]
  - Post-traumatic stress disorder [Unknown]
  - Drug diversion [Unknown]
  - Pain [Unknown]
  - Homicide [Unknown]
  - Prescription drug used without a prescription [Unknown]
